FAERS Safety Report 18233438 (Version 2)
Quarter: 2020Q4

REPORT INFORMATION
  Report Type: Spontaneous
  Country: JP (occurrence: JP)
  Receive Date: 20200904
  Receipt Date: 20201013
  Transmission Date: 20210113
  Serious: Yes (Disabling)
  Sender: FDA-Public Use
  Company Number: JP-ASTRAZENECA-2020SF10758

PATIENT
  Age: 69 Year
  Sex: Male

DRUGS (1)
  1. CRESTOR [Suspect]
     Active Substance: ROSUVASTATIN CALCIUM
     Indication: HYPERCHOLESTEROLAEMIA
     Dosage: UNKNOWN DOSE, EVERY DAY
     Route: 048
     Dates: start: 2010, end: 20170816

REACTIONS (4)
  - Hypoaesthesia [Unknown]
  - Pain in extremity [Unknown]
  - Dropped head syndrome [Not Recovered/Not Resolved]
  - Myalgia [Not Recovered/Not Resolved]

NARRATIVE: CASE EVENT DATE: 201705
